FAERS Safety Report 20769715 (Version 4)
Quarter: 2023Q1

REPORT INFORMATION
  Report Type: Report from Study
  Country: US (occurrence: US)
  Receive Date: 20220429
  Receipt Date: 20230309
  Transmission Date: 20230418
  Serious: Yes (Other)
  Sender: FDA-Public Use
  Company Number: US-ABBVIE-22K-163-4375160-00

PATIENT
  Age: 68 Year
  Sex: Female

DRUGS (6)
  1. HUMIRA [Suspect]
     Active Substance: ADALIMUMAB
     Indication: Rheumatoid arthritis
     Dosage: CITRATE FREE FORM STRENGTH- 40 MG FIRST ADMIN DATE- 2022
     Route: 058
  2. HUMIRA [Suspect]
     Active Substance: ADALIMUMAB
     Route: 058
     Dates: start: 20170201, end: 20221126
  3. Moderna COVID-19 vaccin [Concomitant]
     Indication: COVID-19 immunisation
     Dosage: DOSE 1
     Route: 030
     Dates: start: 20210309, end: 20210309
  4. Moderna COVID-19 vaccin [Concomitant]
     Indication: COVID-19 immunisation
     Dosage: DOSE 2
     Route: 030
     Dates: start: 20210513, end: 20210513
  5. Moderna COVID-19 vaccin [Concomitant]
     Indication: COVID-19 immunisation
     Dosage: BOOSTER DOSE
     Route: 030
     Dates: start: 20211119, end: 20211119
  6. Moderna COVID-19 vaccin [Concomitant]
     Indication: COVID-19 immunisation
     Route: 030
     Dates: start: 20221227, end: 20221227

REACTIONS (7)
  - Intervertebral disc degeneration [Not Recovered/Not Resolved]
  - Sinusitis [Recovering/Resolving]
  - Spondylitis [Unknown]
  - Back pain [Not Recovered/Not Resolved]
  - Sinusitis [Recovered/Resolved]
  - Pain [Recovering/Resolving]
  - Sinusitis [Recovered/Resolved]

NARRATIVE: CASE EVENT DATE: 20221004
